FAERS Safety Report 7830771-3 (Version None)
Quarter: 2011Q4

REPORT INFORMATION
  Report Type: 
  Country: None (occurrence: None)
  Receive Date: 20111021
  Receipt Date: 20111018
  Transmission Date: 20120403
  Serious: Yes (Congenital Anomaly)
  Sender: FDA-Public Use
  Company Number: US-GLAXOSMITHKLINE-A0881195A

PATIENT
  Sex: Male

DRUGS (3)
  1. VITAMIN AND MINERAL PRENATAL SUPPLEMENT W/ FOLIC ACID CAP [Concomitant]
  2. PAXIL [Suspect]
     Indication: ANXIETY
     Route: 064
     Dates: end: 20070101
  3. PROZAC [Suspect]
     Indication: ANXIETY
     Route: 064
     Dates: start: 20070101, end: 20070129

REACTIONS (2)
  - TALIPES [None]
  - MATERNAL EXPOSURE DURING PREGNANCY [None]
